FAERS Safety Report 21443059 (Version 1)
Quarter: 2022Q4

REPORT INFORMATION
  Report Type: Spontaneous
  Country: CA (occurrence: CA)
  Receive Date: 20221012
  Receipt Date: 20221012
  Transmission Date: 20230113
  Serious: Yes (Other)
  Sender: FDA-Public Use
  Company Number: CA-JNJFOC-20221013032

PATIENT
  Age: 59 Year
  Sex: Female
  Weight: 57 kg

DRUGS (9)
  1. REMICADE [Suspect]
     Active Substance: INFLIXIMAB
     Indication: Rheumatoid arthritis
     Route: 041
  2. ACETAMINOPHEN [Concomitant]
     Active Substance: ACETAMINOPHEN
     Indication: Premedication
  3. ARAVA [Concomitant]
     Active Substance: LEFLUNOMIDE
  4. ARTHROTEC [Concomitant]
     Active Substance: DICLOFENAC SODIUM\MISOPROSTOL
     Route: 048
  5. BENADRYL [Concomitant]
     Active Substance: DIPHENHYDRAMINE HYDROCHLORIDE
     Indication: Premedication
  6. FOLIC ACID [Concomitant]
     Active Substance: FOLIC ACID
  7. HYDROCORTISONE [Concomitant]
     Active Substance: HYDROCORTISONE
     Indication: Premedication
  8. METHOTREXATE [Concomitant]
     Active Substance: METHOTREXATE
     Route: 048
  9. PREDNISONE [Concomitant]
     Active Substance: PREDNISONE

REACTIONS (4)
  - Pruritus [Recovered/Resolved]
  - Hypotension [Recovered/Resolved]
  - Off label use [Recovered/Resolved]
  - Inappropriate schedule of product administration [Recovered/Resolved]
